FAERS Safety Report 5993225-5 (Version None)
Quarter: 2008Q4

REPORT INFORMATION
  Report Type: 
  Country: None (occurrence: None)
  Receive Date: 20081210
  Receipt Date: 20081210
  Transmission Date: 20090506
  Serious: Yes (Disabling)
  Sender: FDA-Public Use
  Company Number: None

PATIENT
  Age: 32 Year
  Sex: Female
  Weight: 77.1115 kg

DRUGS (1)
  1. MIRENA [Suspect]
     Indication: CONTRACEPTION
     Dosage: INTRA-UTERINE
     Route: 015
     Dates: start: 20070825, end: 20080812

REACTIONS (12)
  - ABORTION SPONTANEOUS [None]
  - ACNE [None]
  - CERVIX DISORDER [None]
  - DEPRESSION [None]
  - DISTURBANCE IN ATTENTION [None]
  - DRUG EXPOSURE DURING PREGNANCY [None]
  - HORMONE LEVEL ABNORMAL [None]
  - INFERTILITY FEMALE [None]
  - IRRITABILITY [None]
  - MOOD SWINGS [None]
  - OVARIAN CYST [None]
  - WEIGHT INCREASED [None]
